FAERS Safety Report 5421559-1 (Version None)
Quarter: 2007Q3

REPORT INFORMATION
  Report Type: 
  Country: None (occurrence: None)
  Receive Date: 20070726
  Receipt Date: 20070104
  Transmission Date: 20080115
  Serious: Yes (Hospitalization)
  Sender: FDA-Public Use
  Company Number: US200701000826

PATIENT
  Sex: Female

DRUGS (2)
  1. FORTEO [Suspect]
     Indication: OSTEOPOROSIS
     Dates: start: 20061101
  2. FORTEO PEN (TERIPARATIDE) PEN, DISPOSABLE [Concomitant]

REACTIONS (1)
  - DIZZINESS [None]
